FAERS Safety Report 23456415 (Version 1)
Quarter: 2024Q1

REPORT INFORMATION
  Report Type: Spontaneous
  Country: DE (occurrence: DE)
  Receive Date: 20240130
  Receipt Date: 20240130
  Transmission Date: 20240409
  Serious: Yes (Hospitalization, Other)
  Sender: FDA-Public Use
  Company Number: DE-MYLANLABS-2024M1008489

PATIENT
  Sex: Female

DRUGS (1)
  1. CYSTEAMINE [Suspect]
     Active Substance: CYSTEAMINE
     Indication: Cystinosis
     Dosage: 1 DROP, TID
     Route: 047
     Dates: start: 20180309

REACTIONS (4)
  - Papilloedema [Unknown]
  - Intracranial pressure increased [Unknown]
  - Dry eye [Not Recovered/Not Resolved]
  - Vision blurred [Recovered/Resolved]

NARRATIVE: CASE EVENT DATE: 20200207
